FAERS Safety Report 14154970 (Version 3)
Quarter: 2018Q1

REPORT INFORMATION
  Report Type: Spontaneous
  Country: US (occurrence: US)
  Receive Date: 20171102
  Receipt Date: 20180115
  Transmission Date: 20180508
  Serious: No
  Sender: FDA-Public Use
  Company Number: PHHY2017US160291

PATIENT
  Sex: Male

DRUGS (1)
  1. SYSTANE LUBRICANT [Suspect]
     Active Substance: POLYETHYLENE GLYCOL 400\PROPYLENE GLYCOL
     Indication: DRY EYE
     Dosage: 1 GTT, TID
     Route: 047
     Dates: start: 20171026

REACTIONS (2)
  - Product quality issue [Unknown]
  - Eye infection [Not Recovered/Not Resolved]

NARRATIVE: CASE EVENT DATE: 20171027
